FAERS Safety Report 18424251 (Version 2)
Quarter: 2020Q4

REPORT INFORMATION
  Report Type: Spontaneous
  Country: US (occurrence: US)
  Receive Date: 20201025
  Receipt Date: 20201118
  Transmission Date: 20210114
  Serious: Yes (Other)
  Sender: FDA-Public Use
  Company Number: US-NAPPMUNDI-USA-2020-0151719

PATIENT
  Sex: Male

DRUGS (9)
  1. OXYCONTIN [Suspect]
     Active Substance: OXYCODONE HYDROCHLORIDE
     Dosage: 14400 MG, MONTHLY
     Route: 048
  2. OXYCONTIN [Suspect]
     Active Substance: OXYCODONE HYDROCHLORIDE
     Dosage: 3600 MG, MONTHLY
     Route: 048
  3. OXYCONTIN [Suspect]
     Active Substance: OXYCODONE HYDROCHLORIDE
     Dosage: 2400 MG, MONTHLY
     Route: 048
  4. OXYIR [Suspect]
     Active Substance: OXYCODONE HYDROCHLORIDE
     Indication: PRODUCT USED FOR UNKNOWN INDICATION
     Dosage: UNKNOWN
     Route: 065
  5. OXYCONTIN [Suspect]
     Active Substance: OXYCODONE HYDROCHLORIDE
     Indication: PAIN
     Dosage: 360 TABLET, MONTHLY
     Route: 048
     Dates: start: 2006, end: 2009
  6. OXYCONTIN [Suspect]
     Active Substance: OXYCODONE HYDROCHLORIDE
     Dosage: 4800 MG, MONTHLY
     Route: 048
  7. OXYCODONE HCL TABLETS (RHODES 91-490) [Suspect]
     Active Substance: OXYCODONE HYDROCHLORIDE
     Indication: PRODUCT USED FOR UNKNOWN INDICATION
     Dosage: 10 MG, UNK
     Route: 048
     Dates: end: 2008
  8. OXYCODONE HCL CR TABLETS (SIMILAR TO NDA 22-272) [Suspect]
     Active Substance: OXYCODONE HYDROCHLORIDE
     Indication: PRODUCT USED FOR UNKNOWN INDICATION
     Dosage: UNKNOWN
     Route: 048
  9. OPANA [Suspect]
     Active Substance: OXYMORPHONE HYDROCHLORIDE
     Indication: PRODUCT USED FOR UNKNOWN INDICATION
     Dosage: 270 TABLET, MONTHLY
     Route: 048

REACTIONS (17)
  - Pain [Unknown]
  - Hypertension [Unknown]
  - Cardiac disorder [Unknown]
  - Hepatitis C [Unknown]
  - Quality of life decreased [Unknown]
  - Emotional distress [Unknown]
  - Insomnia [Unknown]
  - Drug withdrawal syndrome [Unknown]
  - Unevaluable event [Unknown]
  - Anxiety [Unknown]
  - Sleep apnoea syndrome [Unknown]
  - Drug withdrawal syndrome neonatal [Unknown]
  - Depression [Unknown]
  - Libido decreased [Unknown]
  - Anhedonia [Unknown]
  - Drug dependence [Recovered/Resolved]
  - Post-traumatic stress disorder [Unknown]
